FAERS Safety Report 12569299 (Version 2)
Quarter: 2017Q2

REPORT INFORMATION
  Report Type: Spontaneous
  Country: CA (occurrence: CA)
  Receive Date: 20160719
  Receipt Date: 20170414
  Transmission Date: 20170830
  Serious: Yes (Other)
  Sender: FDA-Public Use
  Company Number: CA-JNJFOC-20160710632

PATIENT
  Age: 34 Year
  Sex: Male

DRUGS (4)
  1. TYLENOL EXTRA STRENGTH [Suspect]
     Active Substance: ACETAMINOPHEN
     Indication: MYALGIA
     Dosage: STRENGTH:500MG ??100 TABLETS, CHRONICALLY OVER 5 DAYS
     Route: 048
     Dates: start: 200003, end: 20000324
  2. TYLENOL EXTRA STRENGTH [Suspect]
     Active Substance: ACETAMINOPHEN
     Indication: CHILLS
     Dosage: STRENGTH:500MG ??100 TABLETS, CHRONICALLY OVER 5 DAYS
     Route: 048
     Dates: start: 200003, end: 20000324
  3. TYLENOL EXTRA STRENGTH [Suspect]
     Active Substance: ACETAMINOPHEN
     Indication: PYREXIA
     Dosage: STRENGTH:500MG ??100 TABLETS, CHRONICALLY OVER 5 DAYS
     Route: 048
     Dates: start: 200003, end: 20000324
  4. TYLENOL EXTRA STRENGTH [Suspect]
     Active Substance: ACETAMINOPHEN
     Indication: TOOTHACHE
     Dosage: STRENGTH:500MG ??100 TABLETS, CHRONICALLY OVER 5 DAYS
     Route: 048
     Dates: start: 200003, end: 20000324

REACTIONS (7)
  - Intentional product misuse [Unknown]
  - Overdose [Unknown]
  - Diarrhoea [Unknown]
  - Alanine aminotransferase increased [Unknown]
  - Aspartate aminotransferase increased [Unknown]
  - Dehydration [Unknown]
  - Blood creatinine increased [Unknown]

NARRATIVE: CASE EVENT DATE: 200003
